FAERS Safety Report 8106822-8 (Version None)
Quarter: 2012Q1

REPORT INFORMATION
  Report Type: 
  Country: None (occurrence: None)
  Receive Date: 20120202
  Receipt Date: 20120126
  Transmission Date: 20120608
  Serious: Yes (Death)
  Sender: FDA-Public Use
  Company Number: SI-SANOFI-AVENTIS-2012SA006825

PATIENT
  Age: 70 Year
  Sex: Male
  Weight: 90 kg

DRUGS (5)
  1. AMLODIPINE BESYLATE [Concomitant]
     Route: 048
     Dates: start: 20050717, end: 20050725
  2. VASILIP [Concomitant]
     Route: 048
     Dates: start: 20050717, end: 20050725
  3. ENAP [Concomitant]
     Route: 048
     Dates: start: 20050717, end: 20050725
  4. ASPIRIN [Concomitant]
     Route: 048
     Dates: start: 20050717, end: 20050725
  5. ENOXAPARIN SODIUM [Suspect]
     Route: 058
     Dates: start: 20050517, end: 20050725

REACTIONS (3)
  - PAIN [None]
  - RETROPERITONEAL HAEMATOMA [None]
  - SHOCK [None]
